FAERS Safety Report 18703655 (Version 56)
Quarter: 2023Q1

REPORT INFORMATION
  Report Type: Report from Study
  Country: MX (occurrence: MX)
  Receive Date: 20210105
  Receipt Date: 20230109
  Transmission Date: 20230418
  Serious: Yes (Hospitalization, Other)
  Sender: FDA-Public Use
  Company Number: MX-TAKEDA-2020TUS061520

PATIENT
  Age: 8 Year
  Sex: Male
  Weight: 23 kg

DRUGS (10)
  1. IDURSULFASE [Suspect]
     Active Substance: IDURSULFASE
     Indication: Mucopolysaccharidosis II
     Dosage: 12 MILLIGRAM, 1/WEEK
     Route: 042
     Dates: start: 201406
  2. IDURSULFASE [Suspect]
     Active Substance: IDURSULFASE
     Dosage: 12 MILLIGRAM, 1/WEEK
     Route: 042
  3. RISPERIDONE [Concomitant]
     Active Substance: RISPERIDONE
     Dosage: 5 MILLILITER, QD
     Route: 048
     Dates: start: 2017
  4. LORATADINE [Concomitant]
     Active Substance: LORATADINE
     Indication: Premedication
     Dosage: 10 MILLIGRAM, QD
     Route: 065
     Dates: start: 2019
  5. FLUTICASONE [Concomitant]
     Active Substance: FLUTICASONE
     Dosage: 2 DOSAGE FORM, Q12H
     Route: 065
     Dates: start: 2019
  6. METOCLOPRAMIDE [Concomitant]
     Active Substance: METOCLOPRAMIDE
     Dosage: 0.5 DOSAGE FORM, Q8HR
     Route: 065
     Dates: start: 2019
  7. OMEPRAZOLE [Concomitant]
     Active Substance: OMEPRAZOLE
     Dosage: UNK UNK, QD
     Route: 048
     Dates: start: 2019
  8. VITAMIN C [Concomitant]
     Active Substance: ASCORBIC ACID
     Dosage: UNK UNK, QD
     Route: 048
     Dates: start: 2019
  9. FERROUS SULFATE [Concomitant]
     Active Substance: FERROUS SULFATE
     Dosage: UNK UNK, QD
     Route: 065
     Dates: start: 2019
  10. ACETAMINOPHEN [Concomitant]
     Active Substance: ACETAMINOPHEN
     Indication: Premedication
     Dosage: 250 MILLIGRAM
     Route: 048
     Dates: start: 2019

REACTIONS (5)
  - Intestinal perforation [Unknown]
  - COVID-19 [Recovering/Resolving]
  - Gastric infection [Recovering/Resolving]
  - Product availability issue [Recovering/Resolving]
  - Product dose omission issue [Recovering/Resolving]

NARRATIVE: CASE EVENT DATE: 20191201
